FAERS Safety Report 17621125 (Version 1)
Quarter: 2020Q2

REPORT INFORMATION
  Report Type: Spontaneous
  Country: DK (occurrence: DK)
  Receive Date: 20200403
  Receipt Date: 20200403
  Transmission Date: 20200713
  Serious: Yes (Other)
  Sender: FDA-Public Use
  Company Number: DK-TEVA-2020-DK-1217535

PATIENT
  Age: 29 Year
  Sex: Male

DRUGS (4)
  1. TRUXAL [Concomitant]
     Active Substance: CHLORPROTHIXENE
     Indication: SEDATIVE THERAPY
     Dosage: STRENGTH: UNKNOWN.; DOSAGE: UNKNOWN.
     Route: 048
     Dates: start: 201302
  2. RISPERDAL [Concomitant]
     Active Substance: RISPERIDONE
     Indication: PSYCHOTIC DISORDER
     Dosage: STRENGTH: UNKNOWN.; DOSAGE: UNKNOWN.
     Route: 048
     Dates: start: 20130214
  3. PHENERGAN [Concomitant]
     Active Substance: PROMETHAZINE HYDROCHLORIDE
     Indication: INSOMNIA
     Dosage: 25 MG
     Route: 048
     Dates: start: 20130304
  4. QUETIAPINE. [Suspect]
     Active Substance: QUETIAPINE
     Indication: DEPRESSION
     Dosage: STRENGTH: UNKNOWN.; DOSAGE: VARYING.
     Route: 048
     Dates: start: 20130301

REACTIONS (7)
  - Hangover [Unknown]
  - Dystonia [Unknown]
  - Insomnia [Unknown]
  - Headache [Unknown]
  - Dizziness [Unknown]
  - Dry mouth [Unknown]
  - Memory impairment [Unknown]

NARRATIVE: CASE EVENT DATE: 201502
